FAERS Safety Report 13946835 (Version 1)
Quarter: 2017Q3

REPORT INFORMATION
  Report Type: Report from Study
  Country: US (occurrence: US)
  Receive Date: 20170907
  Receipt Date: 20170907
  Transmission Date: 20171128
  Serious: Yes (Hospitalization, Other)
  Sender: FDA-Public Use
  Company Number: US-GILEAD-2017-0292087

PATIENT
  Age: 84 Year
  Sex: Male

DRUGS (2)
  1. RANOLAZINE. [Suspect]
     Active Substance: RANOLAZINE
     Dosage: 1000 MG, UNK
     Route: 048
     Dates: start: 20170814
  2. RANOLAZINE. [Suspect]
     Active Substance: RANOLAZINE
     Indication: ANGINA PECTORIS
     Dosage: 1000 MG, UNK
     Route: 048
     Dates: start: 201603, end: 201701

REACTIONS (3)
  - Hypoacusis [Not Recovered/Not Resolved]
  - Myocardial infarction [Unknown]
  - Coronary artery occlusion [Not Recovered/Not Resolved]

NARRATIVE: CASE EVENT DATE: 201708
